FAERS Safety Report 18794069 (Version 1)
Quarter: 2021Q1

REPORT INFORMATION
  Report Type: Report from Study
  Country: IR (occurrence: IR)
  Receive Date: 20210127
  Receipt Date: 20210127
  Transmission Date: 20210419
  Serious: Yes (Other)
  Sender: FDA-Public Use
  Company Number: IR-MYLANLABS-2021M1004946

PATIENT
  Age: 8 Year
  Sex: Male

DRUGS (8)
  1. BUSULFAN. [Suspect]
     Active Substance: BUSULFAN
     Indication: BONE MARROW CONDITIONING REGIMEN
     Dosage: 0.2 MILLIGRAM/KILOGRAM, QD FOR 4 CONSECUTIVE DAYS IN 4 DIVIDED DOSES
     Route: 048
  2. CYCLOSPORIN A [Suspect]
     Active Substance: CYCLOSPORINE
     Indication: PROPHYLAXIS AGAINST GRAFT VERSUS HOST DISEASE
     Dosage: 1.5 MILLIGRAM/KILOGRAM FROM DAY ?2 TO DAY +10
     Route: 042
  3. METHOTREXATE. [Suspect]
     Active Substance: METHOTREXATE
     Dosage: 5 MILLIGRAM/SQ. METER ON DAYS +3 AND +6
     Route: 065
  4. METHOTREXATE. [Suspect]
     Active Substance: METHOTREXATE
     Indication: PROPHYLAXIS AGAINST GRAFT VERSUS HOST DISEASE
     Dosage: 10 MILLIGRAM/SQ. METER ON DAY +1
     Route: 065
  5. CYCLOSPORIN A [Suspect]
     Active Substance: CYCLOSPORINE
     Dosage: 3 MILLIGRAM/KILOGRAM FROM DAY +11
     Route: 042
  6. OXYMETHOLONE [Concomitant]
     Active Substance: OXYMETHOLONE
     Indication: CONGENITAL APLASTIC ANAEMIA
     Dosage: UNK
     Route: 065
  7. CYCLOPHOSPHAMIDE. [Suspect]
     Active Substance: CYCLOPHOSPHAMIDE
     Indication: BONE MARROW CONDITIONING REGIMEN
     Dosage: 15 MILLIGRAM/KILOGRAM, QD
     Route: 042
  8. PREDNISOLONE. [Suspect]
     Active Substance: PREDNISOLONE
     Indication: CONGENITAL APLASTIC ANAEMIA
     Dosage: UNK
     Route: 065

REACTIONS (1)
  - Posterior reversible encephalopathy syndrome [Recovering/Resolving]
